FAERS Safety Report 16000581 (Version 1)
Quarter: 2019Q1

REPORT INFORMATION
  Report Type: Spontaneous
  Country: CA (occurrence: CA)
  Receive Date: 20190225
  Receipt Date: 20190225
  Transmission Date: 20190418
  Serious: Yes (Hospitalization, Other)
  Sender: FDA-Public Use
  Company Number: CA-TEVA-2019-CA-1016667

PATIENT
  Age: 71 Year
  Sex: Female
  Weight: 49 kg

DRUGS (20)
  1. M-ESLON [Concomitant]
     Active Substance: MORPHINE SULFATE
     Dosage: 60 MILLIGRAM DAILY;
     Route: 048
  2. INFLIXIMAB [Suspect]
     Active Substance: INFLIXIMAB
     Indication: CROHN^S DISEASE
     Route: 042
  3. MACROGOL 3350 [Concomitant]
     Active Substance: POLYETHYLENE GLYCOL 3350
     Dosage: 34 GRAM DAILY;
     Route: 048
  4. HYDROMORPHONE HYDROCHLORIDE. [Suspect]
     Active Substance: HYDROMORPHONE HYDROCHLORIDE
     Indication: PRODUCT USED FOR UNKNOWN INDICATION
     Route: 065
  5. CALCIUM CARBONATE. [Concomitant]
     Active Substance: CALCIUM CARBONATE
     Dosage: 2500 MILLIGRAM DAILY;
     Route: 048
  6. FOLIC ACID. [Concomitant]
     Active Substance: FOLIC ACID
     Route: 048
  7. CEFTRIAXONE SODIUM. [Suspect]
     Active Substance: CEFTRIAXONE SODIUM
     Indication: PRODUCT USED FOR UNKNOWN INDICATION
     Route: 065
  8. METHOTREXATE. [Suspect]
     Active Substance: METHOTREXATE
     Indication: PRODUCT USED FOR UNKNOWN INDICATION
     Route: 058
  9. ASACOL [Concomitant]
     Active Substance: MESALAMINE
  10. BUDESONIDE. [Concomitant]
     Active Substance: BUDESONIDE
     Route: 048
  11. METRONIDAZOLE. [Suspect]
     Active Substance: METRONIDAZOLE
     Indication: PRODUCT USED FOR UNKNOWN INDICATION
     Route: 065
  12. CITALOPRAM [Concomitant]
     Active Substance: CITALOPRAM HYDROBROMIDE
     Route: 048
  13. LYRICA [Concomitant]
     Active Substance: PREGABALIN
     Dosage: 150 MILLIGRAM DAILY;
     Route: 048
  14. BUDESONIDE. [Concomitant]
     Active Substance: BUDESONIDE
     Route: 048
  15. LASIX [Concomitant]
     Active Substance: FUROSEMIDE
     Route: 048
  16. SLOW-K [Concomitant]
     Active Substance: POTASSIUM CHLORIDE
     Route: 048
  17. LYRICA [Concomitant]
     Active Substance: PREGABALIN
     Dosage: 75 MILLIGRAM DAILY;
     Route: 048
  18. MELATONIN [Concomitant]
     Active Substance: MELATONIN
     Route: 060
  19. VITAMIN D [Concomitant]
     Active Substance: CHOLECALCIFEROL
     Route: 048
  20. PANTOPRAZOLE [Concomitant]
     Active Substance: PANTOPRAZOLE
     Route: 048

REACTIONS (7)
  - Obstruction [Unknown]
  - Pain [Unknown]
  - Suicide attempt [Unknown]
  - Cognitive disorder [Unknown]
  - Pelvic fracture [Unknown]
  - Malaise [Unknown]
  - Mental disorder [Unknown]
